FAERS Safety Report 24806016 (Version 1)
Quarter: 2025Q1

REPORT INFORMATION
  Report Type: Spontaneous
  Country: US (occurrence: US)
  Receive Date: 20250103
  Receipt Date: 20250103
  Transmission Date: 20250409
  Serious: No
  Sender: PFIZER
  Company Number: US-PFIZER INC-PV202500000653

PATIENT
  Age: 38 Year
  Sex: Male

DRUGS (16)
  1. EUCRISA [Suspect]
     Active Substance: CRISABOROLE
     Indication: Dermatitis atopic
  2. DEVICE [Concomitant]
     Active Substance: DEVICE
  3. JUBLIA [Concomitant]
     Active Substance: EFINACONAZOLE
  4. KETOCONAZOLE [Concomitant]
     Active Substance: KETOCONAZOLE
  5. OPZELURA [Concomitant]
     Active Substance: RUXOLITINIB PHOSPHATE
  6. TACROLIMUS [Concomitant]
     Active Substance: TACROLIMUS
  7. TWYNEO [Concomitant]
     Active Substance: BENZOYL PEROXIDE\TRETINOIN
  8. OXYMETAZOLINE HYDROCHLORIDE [Concomitant]
     Active Substance: OXYMETAZOLINE HYDROCHLORIDE
  9. ISOTRETINOIN [Concomitant]
     Active Substance: ISOTRETINOIN
  10. NEXIUM I.V. [Concomitant]
     Active Substance: ESOMEPRAZOLE SODIUM
  11. DUPIXENT [Concomitant]
     Active Substance: DUPILUMAB
  12. ADBRY [Concomitant]
     Active Substance: TRALOKINUMAB-LDRM
  13. XOLAIR [Concomitant]
     Active Substance: OMALIZUMAB
  14. EUCRISA [Concomitant]
     Active Substance: CRISABOROLE
  15. SERNIVO [Concomitant]
     Active Substance: BETAMETHASONE DIPROPIONATE
  16. CIBINQO [Concomitant]
     Active Substance: ABROCITINIB

REACTIONS (1)
  - Burning sensation [Unknown]

NARRATIVE: CASE EVENT DATE: 20231008
